FAERS Safety Report 7789094-3 (Version None)
Quarter: 2011Q3

REPORT INFORMATION
  Report Type: 
  Country: None (occurrence: None)
  Receive Date: 20110930
  Receipt Date: 20110921
  Transmission Date: 20111222
  Serious: Yes (Other)
  Sender: FDA-Public Use
  Company Number: AU-ASTRAZENECA-2011SE47061

PATIENT
  Age: 71 Year
  Sex: Female

DRUGS (2)
  1. LIPITOR [Suspect]
  2. CRESTOR [Suspect]
     Route: 048
     Dates: start: 20070101, end: 20110301

REACTIONS (7)
  - LIVER DISORDER [None]
  - PAIN [None]
  - VISION BLURRED [None]
  - MUSCLE RIGIDITY [None]
  - BLOOD DISORDER [None]
  - PERIPHERAL CIRCULATORY FAILURE [None]
  - RENAL IMPAIRMENT [None]
